APPROVED DRUG PRODUCT: PROPOFOL
Active Ingredient: PROPOFOL
Strength: 10MG/ML
Dosage Form/Route: INJECTABLE;INJECTION
Application: A217013 | Product #001 | TE Code: AB
Applicant: ASPIRO PHARMA LTD
Approved: Jun 20, 2024 | RLD: No | RS: No | Type: RX